FAERS Safety Report 22151223 (Version 1)
Quarter: 2023Q1

REPORT INFORMATION
  Report Type: Spontaneous
  Country: US (occurrence: None)
  Receive Date: 20230328
  Receipt Date: 20230328
  Transmission Date: 20230418
  Serious: Yes (Disabling)
  Sender: FDA-Public Use
  Company Number: None

PATIENT
  Age: 42 Year
  Sex: Female

DRUGS (2)
  1. TERCONAZOLE [Suspect]
     Active Substance: TERCONAZOLE
     Indication: Vulvovaginal mycotic infection
     Dosage: OTHER QUANTITY : 1 APPLICATOR;?FREQUENCY : DAILY;?
     Route: 067
     Dates: start: 20220904, end: 20220906
  2. CLARITIN [Concomitant]
     Active Substance: LORATADINE

REACTIONS (6)
  - Vulvovaginal swelling [None]
  - Vulvovaginal burning sensation [None]
  - Blister [None]
  - Vulvovaginal exfoliation [None]
  - Vaginal scarring [None]
  - Pelvic pain [None]

NARRATIVE: CASE EVENT DATE: 20220907
